FAERS Safety Report 8023047-5 (Version None)
Quarter: 2012Q1

REPORT INFORMATION
  Report Type: 
  Country: None (occurrence: None)
  Receive Date: 20120104
  Receipt Date: 20111229
  Transmission Date: 20120608
  Serious: Yes (Life-Threatening, Hospitalization)
  Sender: FDA-Public Use
  Company Number: GB-PFIZER INC-2011316790

PATIENT
  Age: 73 Year

DRUGS (2)
  1. IBUPROFEN [Suspect]
  2. NAPROXEN [Concomitant]
     Dosage: 250 MG, 2X/DAY

REACTIONS (2)
  - RENAL FAILURE ACUTE [None]
  - DUODENAL ULCER PERFORATION [None]
